FAERS Safety Report 7256392-1 (Version None)
Quarter: 2011Q1

REPORT INFORMATION
  Report Type: 
  Country: None (occurrence: None)
  Receive Date: 20110129
  Receipt Date: 20100708
  Transmission Date: 20110831
  Serious: No
  Sender: FDA-Public Use
  Company Number: US-ABBOTT-10P-163-0656525-00

PATIENT
  Sex: Female
  Weight: 90.8 kg

DRUGS (2)
  1. DIOVAN [Concomitant]
     Indication: HYPERTENSION
  2. HUMIRA [Suspect]
     Indication: RHEUMATOID ARTHRITIS
     Route: 058
     Dates: start: 20070101, end: 20091201

REACTIONS (2)
  - COUGH [None]
  - ORAL HERPES [None]
